FAERS Safety Report 9729846 (Version 2)
Quarter: 2013Q4

REPORT INFORMATION
  Report Type: Spontaneous
  Country: IT (occurrence: None)
  Receive Date: 20131203
  Receipt Date: 20131226
  Transmission Date: 20140711
  Serious: Yes (Hospitalization)
  Sender: FDA-Public Use
  Company Number: AUR-APL-2013-09886

PATIENT
  Age: 23 Year
  Sex: Female

DRUGS (3)
  1. DIAZEPAM [Suspect]
     Indication: PRODUCT USED FOR UNKNOWN INDICATION
     Dosage: (20 GTT), ORAL
     Route: 048
     Dates: start: 20131021, end: 20131021
  2. PAROXETINE [Suspect]
     Indication: PRODUCT USED FOR UNKNOWN INDICATION
     Dosage: 200 MG, TOTAL, ORAL
     Route: 048
     Dates: start: 20131021, end: 20131021
  3. TOLEP [Suspect]
     Indication: PRODUCT USED FOR UNKNOWN INDICATION
     Dosage: (6 DOSAGE FORMS, TOTAL), ORAL
     Route: 048
     Dates: start: 20131021, end: 20131021

REACTIONS (6)
  - Suicide attempt [None]
  - Sopor [None]
  - Drug abuse [None]
  - Incorrect dose administered [None]
  - Intentional self-injury [None]
  - Psychotic disorder [None]
